FAERS Safety Report 7271348-0 (Version None)
Quarter: 2011Q1

REPORT INFORMATION
  Report Type: 
  Country: None (occurrence: None)
  Receive Date: 20110203
  Receipt Date: 20110126
  Transmission Date: 20110831
  Serious: No
  Sender: FDA-Public Use
  Company Number: US-BIOGENIDEC-2011BI003140

PATIENT
  Age: 35 Year
  Sex: Female

DRUGS (2)
  1. HYDROCODONE [Concomitant]
     Indication: PAIN
     Route: 048
  2. TYSABRI [Suspect]
     Indication: MULTIPLE SCLEROSIS
     Route: 042
     Dates: start: 20110104

REACTIONS (5)
  - PAIN [None]
  - ARTHRALGIA [None]
  - MALAISE [None]
  - NAUSEA [None]
  - FATIGUE [None]
